FAERS Safety Report 8202124-X (Version None)
Quarter: 2012Q1

REPORT INFORMATION
  Report Type: 
  Country: None (occurrence: None)
  Receive Date: 20120312
  Receipt Date: 20101117
  Transmission Date: 20120608
  Serious: Yes (Death)
  Sender: FDA-Public Use
  Company Number: JP-BAYER-201015302BYL

PATIENT
  Age: 76 Year
  Sex: Male
  Weight: 43 kg

DRUGS (9)
  1. SELBEX [Concomitant]
     Dosage: 150 MG (DAILY DOSE), , ORAL
     Route: 048
     Dates: end: 20101019
  2. LENDORMIN [Concomitant]
     Indication: INSOMNIA
     Route: 048
  3. DIOVAN [Concomitant]
     Dosage: 40 MG (DAILY DOSE), , ORAL
     Route: 048
     Dates: end: 20101019
  4. MAGMITT [Concomitant]
     Dosage: 990 MG (DAILY DOSE), , ORAL
     Route: 048
     Dates: end: 20101019
  5. GLAKAY [Concomitant]
     Dosage: 45 MG (DAILY DOSE), , ORAL
     Route: 048
     Dates: end: 20101019
  6. AMLODIPINE [Concomitant]
     Dosage: 5 MG (DAILY DOSE), , ORAL
     Route: 048
     Dates: end: 20101019
  7. RABEPRAZOLE SODIUM [Concomitant]
     Dosage: 10 MG (DAILY DOSE), , ORAL
     Route: 048
     Dates: end: 20101019
  8. NEXAVAR [Suspect]
     Indication: HEPATIC NEOPLASM MALIGNANT
     Route: 048
     Dates: start: 20101004, end: 20101019
  9. CEFAZOLIN SODIUM [Concomitant]
     Route: 048
     Dates: end: 20101019

REACTIONS (1)
  - HEPATIC ENCEPHALOPATHY [None]
